FAERS Safety Report 21337591 (Version 1)
Quarter: 2022Q3

REPORT INFORMATION
  Report Type: Spontaneous
  Country: US (occurrence: None)
  Receive Date: 20220915
  Receipt Date: 20220915
  Transmission Date: 20221027
  Serious: Yes (Other)
  Sender: FDA-Public Use
  Company Number: None

PATIENT
  Age: 58 Year
  Sex: Female
  Weight: 83.25 kg

DRUGS (1)
  1. AMITRIPTYLINE [Suspect]
     Active Substance: AMITRIPTYLINE
     Indication: Anxiety
     Dosage: OTHER QUANTITY : 1 TABLET(S);?FREQUENCY : AT BEDTIME;?
     Route: 048
     Dates: start: 20150101, end: 20220826

REACTIONS (7)
  - Nausea [None]
  - Dizziness [None]
  - Syncope [None]
  - Product distribution issue [None]
  - Therapy interrupted [None]
  - Extra dose administered [None]
  - Product administration error [None]

NARRATIVE: CASE EVENT DATE: 20220914
